FAERS Safety Report 24525983 (Version 1)
Quarter: 2024Q4

REPORT INFORMATION
  Report Type: Spontaneous
  Country: US (occurrence: US)
  Receive Date: 20241020
  Receipt Date: 20241020
  Transmission Date: 20250115
  Serious: Yes (Disabling, Other)
  Sender: DR REDDYS
  Company Number: US-DRL-USA-LIT/USA/24/0015325

PATIENT
  Age: 44 Year
  Sex: Male

DRUGS (3)
  1. CYCLOPHOSPHAMIDE [Suspect]
     Active Substance: CYCLOPHOSPHAMIDE
     Indication: Germ cell cancer
     Dosage: INDUCTION
  2. METHYLPREDNISOLONE [Concomitant]
     Active Substance: METHYLPREDNISOLONE
     Indication: Product used for unknown indication
     Dosage: HIGH DOSE
  3. Immunoglobulin [Concomitant]
     Indication: Product used for unknown indication

REACTIONS (2)
  - Drug ineffective for unapproved indication [Unknown]
  - Malignant neoplasm progression [Unknown]
